FAERS Safety Report 6310795-8 (Version None)
Quarter: 2009Q3

REPORT INFORMATION
  Report Type: 
  Country: None (occurrence: None)
  Receive Date: 20090812
  Receipt Date: 20090727
  Transmission Date: 20100115
  Serious: Yes (Other)
  Sender: FDA-Public Use
  Company Number: AVE_00747_2009

PATIENT
  Sex: Female

DRUGS (2)
  1. NICOTINE [Suspect]
     Indication: SMOKING CESSATION THERAPY
     Dosage: (21 MG QD TRANSDERMAL), (21 MG QD TRANSDERMAL)
     Route: 062
     Dates: start: 20090711, end: 20090712
  2. NICOTINE [Suspect]
     Indication: SMOKING CESSATION THERAPY
     Dosage: (21 MG QD TRANSDERMAL), (21 MG QD TRANSDERMAL)
     Route: 062
     Dates: start: 20090718, end: 20090719

REACTIONS (4)
  - ANGER [None]
  - IRRITABILITY [None]
  - SCREAMING [None]
  - SUICIDAL IDEATION [None]
